FAERS Safety Report 5252136-3 (Version None)
Quarter: 2007Q1

REPORT INFORMATION
  Report Type: 
  Country: None (occurrence: None)
  Receive Date: 20070227
  Receipt Date: 20070214
  Transmission Date: 20070707
  Serious: Yes (Other)
  Sender: FDA-Public Use
  Company Number: CHNY2007JP00949

PATIENT
  Age: 7 Year
  Sex: Male

DRUGS (6)
  1. CLEMASTINE FUMARATE [Suspect]
     Indication: BRONCHITIS
     Dosage: ORAL
     Route: 048
     Dates: start: 20070210, end: 20070210
  2. ASVERIN (TIPEPIDINE HIBENZATE) [Suspect]
     Dosage: ORAL
     Route: 048
     Dates: start: 20070210, end: 20070210
  3. FLOMOX (CEFCAPENE PIVOXIL HYDROCHLORIDE) [Concomitant]
  4. PULSMARIN A (AMBROXOL HYDROCHLORIDE) [Concomitant]
  5. BIOFERMIN (BACILLUS SUBTILIS, LACTOBACILLUS ACIDOPHILUS, STREPTOCOCCUS [Concomitant]
  6. NAUZELIN (DOMPERIDONE) [Concomitant]

REACTIONS (1)
  - CONFUSIONAL STATE [None]
